FAERS Safety Report 8818669 (Version 1)
Quarter: 2012Q4

REPORT INFORMATION
  Report Type: 
  Country: GB (occurrence: GB)
  Receive Date: 20121001
  Receipt Date: 20121001
  Transmission Date: 20130627
  Serious: Yes (Life-Threatening, Hospitalization)
  Sender: FDA-Public Use
  Company Number: PHHY2012GB084698

PATIENT
  Age: 86 Year
  Sex: Male
  Weight: 89 kg

DRUGS (8)
  1. WARFARIN [Suspect]
     Indication: AORTIC VALVE REPLACEMENT
     Route: 048
  2. WARFARIN [Suspect]
     Route: 048
  3. BICALUTAMIDE [Suspect]
     Indication: PROSTATE CANCER
     Dosage: 50 mg, QD
     Route: 048
     Dates: start: 20120801
  4. ATORVASTATIN [Concomitant]
  5. TAMSULOSIN [Concomitant]
  6. BENDROFLUMETHIAZIDE [Concomitant]
  7. NICORANDIL [Concomitant]
  8. BISOPROLOL [Concomitant]

REACTIONS (2)
  - Haematuria [Recovered/Resolved]
  - International normalised ratio increased [Recovered/Resolved]
